FAERS Safety Report 9402901 (Version 1)
Quarter: 2013Q3

REPORT INFORMATION
  Report Type: Spontaneous
  Country: US (occurrence: US)
  Receive Date: 20130716
  Receipt Date: 20130716
  Transmission Date: 20140515
  Serious: Yes (Death)
  Sender: FDA-Public Use
  Company Number: US-ROXANE LABORATORIES, INC.-2013-RO-01184RO

PATIENT
  Age: 20 Year
  Sex: Male

DRUGS (1)
  1. METHADONE [Suspect]

REACTIONS (1)
  - Overdose [Fatal]
